FAERS Safety Report 4738945-5 (Version None)
Quarter: 2005Q3

REPORT INFORMATION
  Report Type: 
  Country: None (occurrence: None)
  Receive Date: 20050801
  Receipt Date: 20040610
  Transmission Date: 20060218
  Serious: Yes (Other)
  Sender: FDA-Public Use
  Company Number: 207105

PATIENT
  Age: 65 Year
  Sex: Female

DRUGS (8)
  1. HERCEPTIN [Suspect]
     Indication: BREAST CANCER METASTATIC
     Dosage: 300 MG, SINGLE, INTRAVENOUS;  150 MG, 1/WEEK, INTRAVENOUS;  284 MG, SINGLE, INTRAVENOUS;  142 MG, 1/
     Route: 042
     Dates: start: 20011221, end: 20020308
  2. HERCEPTIN [Suspect]
     Indication: BREAST CANCER METASTATIC
     Dosage: 300 MG, SINGLE, INTRAVENOUS;  150 MG, 1/WEEK, INTRAVENOUS;  284 MG, SINGLE, INTRAVENOUS;  142 MG, 1/
     Route: 042
     Dates: start: 20021121, end: 20021121
  3. HERCEPTIN [Suspect]
     Indication: BREAST CANCER METASTATIC
     Dosage: 300 MG, SINGLE, INTRAVENOUS;  150 MG, 1/WEEK, INTRAVENOUS;  284 MG, SINGLE, INTRAVENOUS;  142 MG, 1/
     Route: 042
     Dates: start: 20011214
  4. HERCEPTIN [Suspect]
     Indication: BREAST CANCER METASTATIC
     Dosage: 300 MG, SINGLE, INTRAVENOUS;  150 MG, 1/WEEK, INTRAVENOUS;  284 MG, SINGLE, INTRAVENOUS;  142 MG, 1/
     Route: 042
     Dates: start: 20021128
  5. TAXOL [Suspect]
     Indication: BREAST CANCER METASTATIC
     Dosage: 175 MG/M2, Q3W, INTRAVENOUS
     Route: 042
     Dates: start: 20030801
  6. CARBOPLATIN [Suspect]
     Indication: BREAST CANCER METASTATIC
     Dosage: Q3W, INTRAVENOUS
     Route: 042
     Dates: start: 20030801
  7. ACETAMINOPHEN [Concomitant]
  8. VITAMIN E [Concomitant]

REACTIONS (1)
  - DRUG INEFFECTIVE [None]
